FAERS Safety Report 7952861-7 (Version None)
Quarter: 2011Q4

REPORT INFORMATION
  Report Type: 
  Country: None (occurrence: None)
  Receive Date: 20111201
  Receipt Date: 20111122
  Transmission Date: 20120403
  Serious: Yes (Hospitalization)
  Sender: FDA-Public Use
  Company Number: FR-ASTRAZENECA-2011SE71698

PATIENT
  Age: 29913 Day
  Sex: Male

DRUGS (9)
  1. MABTHERA [Suspect]
     Indication: NON-HODGKIN'S LYMPHOMA
     Dosage: 730 MG (375 MG/M2) ON THE FIRST DAY
     Route: 042
     Dates: start: 20110101, end: 20110520
  2. SIMVASTATIN [Concomitant]
     Indication: HYPERCHOLESTEROLAEMIA
     Route: 048
  3. CYCLOPHOSPHAMIDE [Suspect]
     Indication: NON-HODGKIN'S LYMPHOMA
     Dosage: 300 MG DAILY (150MG/M2) FROM DAY 1 TO DAY 3
     Route: 048
     Dates: start: 20110101, end: 20110520
  4. PROCORALAN [Suspect]
     Indication: MYOCARDIAL ISCHAEMIA
     Route: 048
     Dates: end: 20110601
  5. OLMESARTAN MEDOXOMIL AND HYDROCHLOROTHIZIDE [Suspect]
     Indication: HYPERTENSION
     Route: 048
     Dates: end: 20110601
  6. ETOPOSIDE [Suspect]
     Indication: NON-HODGKIN'S LYMPHOMA
     Dosage: 200 MG (100 MG/M2) ON THE FIRST DAY
     Route: 048
     Dates: start: 20110101, end: 20110520
  7. PREDNISOLONE [Suspect]
     Indication: NON-HODGKIN'S LYMPHOMA
     Dosage: 80 MG DAILY FROM DAY 1 TO DAY 5
     Route: 048
     Dates: start: 20110101, end: 20110520
  8. PREVISCAN [Concomitant]
     Indication: ATRIAL FIBRILLATION
     Route: 048
  9. OMEPRAZOLE [Suspect]
     Route: 048
     Dates: start: 20110101, end: 20110520

REACTIONS (2)
  - PULMONARY FIBROSIS [None]
  - INTERSTITIAL LUNG DISEASE [None]
